FAERS Safety Report 14812670 (Version 1)
Quarter: 2018Q2

REPORT INFORMATION
  Report Type: Report from Study
  Country: None (occurrence: US)
  Receive Date: 20180425
  Receipt Date: 20180425
  Transmission Date: 20180711
  Serious: Yes (Other)
  Sender: FDA-Public Use
  Company Number: US-ABBVIE-18S-163-2329665-00

PATIENT
  Age: 49 Year
  Sex: Male

DRUGS (1)
  1. ANDROGEL [Suspect]
     Active Substance: TESTOSTERONE
     Indication: PRODUCT USED FOR UNKNOWN INDICATION
     Route: 061

REACTIONS (5)
  - Thyroid disorder [Unknown]
  - Benign neoplasm [Unknown]
  - Pituitary tumour [Unknown]
  - Cerebrovascular accident [Unknown]
  - Adrenal disorder [Unknown]

NARRATIVE: CASE EVENT DATE: 1980
